FAERS Safety Report 7131361-0 (Version None)
Quarter: 2010Q4

REPORT INFORMATION
  Report Type: 
  Country: None (occurrence: None)
  Receive Date: 20101201
  Receipt Date: 20091230
  Transmission Date: 20110411
  Serious: No
  Sender: FDA-Public Use
  Company Number: US-TYCO HEALTHCARE/MALLINCKRODT-T200902387

PATIENT

DRUGS (4)
  1. METHYLIN [Suspect]
     Indication: NARCOLEPSY
     Dosage: 20 MG, BID
     Dates: start: 20030101
  2. ADDERALL 10 [Concomitant]
     Dosage: 30 MG, BID
  3. LASIX [Concomitant]
     Indication: OEDEMA
     Dosage: 40 MG, QD
  4. HYDREA [Concomitant]
     Indication: NEOPLASM MALIGNANT
     Dosage: 500 MG, UNK

REACTIONS (1)
  - DRUG SCREEN POSITIVE [None]
